FAERS Safety Report 15582544 (Version 2)
Quarter: 2018Q4

REPORT INFORMATION
  Report Type: Spontaneous
  Country: PT (occurrence: PT)
  Receive Date: 20181105
  Receipt Date: 20181112
  Transmission Date: 20190205
  Serious: No
  Sender: FDA-Public Use
  Company Number: PT-009507513-1810PRT014055

PATIENT
  Sex: Female

DRUGS (1)
  1. KEYTRUDA [Suspect]
     Active Substance: PEMBROLIZUMAB
     Indication: LUNG NEOPLASM MALIGNANT
     Dosage: 3 CYCLE

REACTIONS (3)
  - Eye oedema [Recovered/Resolved]
  - Lip oedema [Recovered/Resolved]
  - Musculoskeletal stiffness [Recovered/Resolved]
